FAERS Safety Report 6388754-9 (Version None)
Quarter: 2009Q4

REPORT INFORMATION
  Report Type: 
  Country: None (occurrence: None)
  Receive Date: 20091005
  Receipt Date: 20090918
  Transmission Date: 20100525
  Serious: Yes (Other)
  Sender: FDA-Public Use
  Company Number: US-BAYER-200933757NA

PATIENT
  Age: 44 Year
  Sex: Male
  Weight: 82 kg

DRUGS (5)
  1. MAGNEVIST [Suspect]
     Indication: NUCLEAR MAGNETIC RESONANCE IMAGING ABDOMINAL
     Dosage: TOTAL DAILY DOSE: 20 ML
     Route: 042
     Dates: start: 20061104, end: 20061104
  2. OMNISCAN [Suspect]
     Indication: NUCLEAR MAGNETIC RESONANCE IMAGING BRAIN
     Dosage: TOTAL DAILY DOSE: 15 ML
     Route: 042
     Dates: start: 20070327, end: 20070327
  3. LIPITOR [Concomitant]
  4. CYCLOSPORINE [Concomitant]
  5. CELLCEPT [Concomitant]

REACTIONS (10)
  - EXTREMITY CONTRACTURE [None]
  - JOINT RANGE OF MOTION DECREASED [None]
  - MUSCULOSKELETAL STIFFNESS [None]
  - NEPHROGENIC SYSTEMIC FIBROSIS [None]
  - OEDEMA PERIPHERAL [None]
  - PRURITUS [None]
  - RASH [None]
  - SKIN FIBROSIS [None]
  - SKIN HYPERTROPHY [None]
  - SKIN PLAQUE [None]
